FAERS Safety Report 6599784-6 (Version None)
Quarter: 2010Q1

REPORT INFORMATION
  Report Type: 
  Country: None (occurrence: None)
  Receive Date: 20100224
  Receipt Date: 20100219
  Transmission Date: 20100710
  Serious: Yes (Death, Other)
  Sender: FDA-Public Use
  Company Number: PHEH2010US02581

PATIENT
  Sex: Female
  Weight: 76 kg

DRUGS (9)
  1. GLEEVEC [Suspect]
     Indication: GASTROINTESTINAL STROMAL TUMOUR
     Dosage: 400 MG, QD
     Route: 048
     Dates: start: 20080101
  2. COUMADIN [Concomitant]
     Dosage: UNK, UNK
  3. ALLOPURINOL [Concomitant]
     Dosage: UNK, UNK
  4. PROTONIX [Concomitant]
     Dosage: UNK, UNK
  5. CYMBALTA [Concomitant]
     Dosage: UNK, UNK
  6. SYNTHROID [Concomitant]
     Dosage: UNK, UNK
  7. ASPIRIN [Concomitant]
     Dosage: UNK, UNK
  8. NOVOLOG [Concomitant]
     Dosage: UNK, UNK
  9. LOVENOX [Concomitant]
     Dosage: UNK, UNK

REACTIONS (7)
  - APNOEIC ATTACK [None]
  - CARDIAC ARREST [None]
  - ELECTROMECHANICAL DISSOCIATION [None]
  - FALL [None]
  - LOSS OF CONSCIOUSNESS [None]
  - PULSE ABSENT [None]
  - VENTRICULAR TACHYCARDIA [None]
